FAERS Safety Report 12973555 (Version 2)
Quarter: 2016Q4

REPORT INFORMATION
  Report Type: Spontaneous
  Country: EG (occurrence: EG)
  Receive Date: 20161124
  Receipt Date: 20161130
  Transmission Date: 20170207
  Serious: Yes (Death, Hospitalization, Other)
  Sender: FDA-Public Use
  Company Number: EG-JNJFOC-20161123855

PATIENT
  Sex: Male

DRUGS (2)
  1. XARELTO [Suspect]
     Active Substance: RIVAROXABAN
     Indication: PULMONARY EMBOLISM
     Route: 048
  2. BRUFEN [Concomitant]
     Active Substance: IBUPROFEN
     Indication: PULMONARY EMBOLISM
     Route: 065

REACTIONS (4)
  - Gastrointestinal haemorrhage [Unknown]
  - Neoplasm malignant [Unknown]
  - Cardiac ventricular thrombosis [Unknown]
  - Renal failure [Fatal]
